FAERS Safety Report 20093128 (Version 1)
Quarter: 2021Q4

REPORT INFORMATION
  Report Type: Spontaneous
  Country: BR (occurrence: BR)
  Receive Date: 20211120
  Receipt Date: 20211120
  Transmission Date: 20220303
  Serious: Yes (Other)
  Sender: FDA-Public Use
  Company Number: BR-MLMSERVICE-20211029-3194466-1

PATIENT
  Age: 68 Year
  Sex: Male

DRUGS (11)
  1. GEMCITABINE [Suspect]
     Active Substance: GEMCITABINE
     Indication: B-cell small lymphocytic lymphoma
     Dates: end: 201912
  2. GEMCITABINE [Suspect]
     Active Substance: GEMCITABINE
     Indication: Chronic lymphocytic leukaemia
  3. RITUXIMAB [Suspect]
     Active Substance: RITUXIMAB
     Indication: B-cell small lymphocytic lymphoma
     Dates: end: 201912
  4. RITUXIMAB [Suspect]
     Active Substance: RITUXIMAB
     Indication: Chronic lymphocytic leukaemia
  5. OXALIPLATIN [Suspect]
     Active Substance: OXALIPLATIN
     Indication: Chronic lymphocytic leukaemia
     Dates: end: 201912
  6. OXALIPLATIN [Suspect]
     Active Substance: OXALIPLATIN
     Indication: B-cell small lymphocytic lymphoma
  7. DEFERASIROX [Suspect]
     Active Substance: DEFERASIROX
     Indication: Iron overload
  8. CHLORAMBUCIL [Concomitant]
     Active Substance: CHLORAMBUCIL
     Indication: Disease progression
     Dates: end: 201912
  9. PREDNISONE [Concomitant]
     Active Substance: PREDNISONE
     Indication: Disease progression
     Dates: end: 201912
  10. CYCLOPHOSPHAMIDE [Concomitant]
     Active Substance: CYCLOPHOSPHAMIDE
     Indication: Disease progression
     Dates: end: 201912
  11. VINCRISTINE [Concomitant]
     Active Substance: VINCRISTINE
     Indication: Disease progression
     Dates: end: 201912

REACTIONS (3)
  - Toxicity to various agents [Unknown]
  - Neuropathy peripheral [Unknown]
  - Anaemia [Unknown]
